FAERS Safety Report 17560577 (Version 1)
Quarter: 2020Q1

REPORT INFORMATION
  Report Type: Spontaneous
  Country: SG (occurrence: SG)
  Receive Date: 20200319
  Receipt Date: 20200319
  Transmission Date: 20200409
  Serious: Yes (Hospitalization, Other)
  Sender: FDA-Public Use
  Company Number: SG-VISTAPHARM, INC.-VER202003-000569

PATIENT
  Age: 77 Year
  Sex: Female

DRUGS (1)
  1. DIGOXIN. [Suspect]
     Active Substance: DIGOXIN
     Indication: CARDIAC FAILURE
     Dosage: 125 MCG ONCE DAILY

REACTIONS (4)
  - Electrocardiogram ST segment abnormal [Recovering/Resolving]
  - Electrocardiogram T wave biphasic [Recovering/Resolving]
  - Treatment noncompliance [Unknown]
  - Atrioventricular block first degree [Recovering/Resolving]
